FAERS Safety Report 8300133-3 (Version None)
Quarter: 2012Q2

REPORT INFORMATION
  Report Type: 
  Country: None (occurrence: None)
  Receive Date: 20120420
  Receipt Date: 20120418
  Transmission Date: 20120825
  Serious: No
  Sender: FDA-Public Use
  Company Number: US-PFIZER INC-2012097424

PATIENT
  Sex: Female
  Weight: 77.098 kg

DRUGS (5)
  1. CHANTIX [Suspect]
     Dosage: 1 MG, 2X/DAY
     Dates: start: 20120401, end: 20120418
  2. CHANTIX [Suspect]
     Dosage: 0.5 MG, 2X/DAY
     Dates: start: 20120401, end: 20120401
  3. IBUPROFEN (ADVIL) [Concomitant]
     Indication: BACK PAIN
     Dosage: UNK, 3X/WEEK
  4. CHANTIX [Suspect]
     Indication: SMOKING CESSATION THERAPY
     Dosage: 0.5 MG, DAILY
     Dates: start: 20120401, end: 20120401
  5. RANITIDINE [Concomitant]
     Indication: HYPERCHLORHYDRIA
     Dosage: 150 MG, 2X/DAY

REACTIONS (1)
  - NAUSEA [None]
